FAERS Safety Report 14934553 (Version 3)
Quarter: 2018Q3

REPORT INFORMATION
  Report Type: Report from Study
  Country: US (occurrence: US)
  Receive Date: 20180524
  Receipt Date: 20180716
  Transmission Date: 20181010
  Serious: No
  Sender: FDA-Public Use
  Company Number: US-INCYTE CORPORATION-2018IN003763

PATIENT

DRUGS (1)
  1. JAKAFI [Suspect]
     Active Substance: RUXOLITINIB
     Dosage: 5MG QD MON?THUR, 5MG BID ON FRI,SAT,SUN
     Route: 048

REACTIONS (6)
  - Tooth fracture [Unknown]
  - Inappropriate schedule of drug administration [Unknown]
  - Nervousness [Unknown]
  - Rash [Unknown]
  - Malaise [Unknown]
  - Hyperphagia [Unknown]

NARRATIVE: CASE EVENT DATE: 201806
